FAERS Safety Report 7272826-0 (Version None)
Quarter: 2011Q1

REPORT INFORMATION
  Report Type: 
  Country: None (occurrence: None)
  Receive Date: 20110203
  Receipt Date: 20110128
  Transmission Date: 20110831
  Serious: Yes (Hospitalization, Other)
  Sender: FDA-Public Use
  Company Number: US-MERCK-0701USA00969

PATIENT
  Age: 61 Year
  Sex: Male
  Weight: 89 kg

DRUGS (6)
  1. CELEBREX [Concomitant]
     Indication: OSTEOARTHRITIS
     Route: 065
     Dates: start: 19920101
  2. VALTREX [Concomitant]
     Indication: HERPES ZOSTER
     Route: 065
     Dates: start: 20040301, end: 20040901
  3. ALLOPURINOL [Concomitant]
     Indication: GOUT
     Route: 065
     Dates: start: 19860101, end: 20070611
  4. LISINOPRIL [Concomitant]
     Indication: HYPERTENSION
     Route: 065
     Dates: start: 19950101
  5. FOSAMAX [Suspect]
     Route: 048
     Dates: start: 20030101, end: 20040101
  6. PREDNISONE [Concomitant]
     Indication: PAROPHTHALMIA
     Route: 065
     Dates: start: 20040101, end: 20041101

REACTIONS (37)
  - DEEP VEIN THROMBOSIS [None]
  - APHTHOUS STOMATITIS [None]
  - CHRONIC OBSTRUCTIVE PULMONARY DISEASE [None]
  - TRANSIENT ISCHAEMIC ATTACK [None]
  - CERVICAL MYELOPATHY [None]
  - MYELOPATHY [None]
  - CATARACT [None]
  - WEIGHT DECREASED [None]
  - TRICUSPID VALVE DISEASE [None]
  - BEHCET'S SYNDROME [None]
  - DYSPNOEA [None]
  - LUNG NEOPLASM [None]
  - HERPES ZOSTER [None]
  - TOLOSA-HUNT SYNDROME [None]
  - CARPAL TUNNEL SYNDROME [None]
  - PULMONARY INFARCTION [None]
  - PNEUMOTHORAX [None]
  - OSTEOMYELITIS [None]
  - MYOCARDIAL INFARCTION [None]
  - CONTUSION [None]
  - PULMONARY EMBOLISM [None]
  - PAROPHTHALMIA [None]
  - GOUTY ARTHRITIS [None]
  - GASTROINTESTINAL NEOPLASM [None]
  - ADVERSE EVENT [None]
  - SKIN ULCER [None]
  - SPINAL OSTEOARTHRITIS [None]
  - TINNITUS [None]
  - ARTERIOSCLEROSIS CORONARY ARTERY [None]
  - CORONARY ARTERY DISEASE [None]
  - PNEUMONIA [None]
  - OEDEMA PERIPHERAL [None]
  - ORAL HERPES [None]
  - DIPLOPIA [None]
  - OSTEONECROSIS OF JAW [None]
  - HYPERLIPIDAEMIA [None]
  - TRIGEMINAL NEURALGIA [None]
